FAERS Safety Report 11243231 (Version 1)
Quarter: 2015Q3

REPORT INFORMATION
  Report Type: Spontaneous
  Country: DK (occurrence: DK)
  Receive Date: 20150707
  Receipt Date: 20150707
  Transmission Date: 20151125
  Serious: Yes (Other)
  Sender: FDA-Public Use
  Company Number: DK-SA-2015SA095206

PATIENT
  Age: 53 Year
  Sex: Female

DRUGS (3)
  1. TAXOTERE [Suspect]
     Active Substance: DOCETAXEL
     Indication: INVASIVE DUCTAL BREAST CARCINOMA
     Route: 042
     Dates: start: 20140313, end: 20150313
  2. TAXOTERE [Suspect]
     Active Substance: DOCETAXEL
     Indication: INVASIVE DUCTAL BREAST CARCINOMA
     Dosage: FORM-SUSPENSION FOR INFUSION.
     Route: 042
     Dates: start: 20140129, end: 20140129
  3. TAXOTERE [Suspect]
     Active Substance: DOCETAXEL
     Indication: INVASIVE DUCTAL BREAST CARCINOMA
     Route: 042
     Dates: start: 20140220, end: 20140220

REACTIONS (14)
  - Conjunctival disorder [Unknown]
  - Bone pain [Unknown]
  - Balance disorder [Unknown]
  - Fatigue [Unknown]
  - Neurotoxicity [Unknown]
  - Temperature regulation disorder [Unknown]
  - Fungal infection [Unknown]
  - Neuropathy peripheral [Unknown]
  - Paraesthesia oral [Unknown]
  - Fine motor skill dysfunction [Unknown]
  - Sensory disturbance [Unknown]
  - Pain [Unknown]
  - Myalgia [Unknown]
  - Paraesthesia [Unknown]

NARRATIVE: CASE EVENT DATE: 20140313
